FAERS Safety Report 16288056 (Version 1)
Quarter: 2019Q2

REPORT INFORMATION
  Report Type: Spontaneous
  Country: US (occurrence: US)
  Receive Date: 20190508
  Receipt Date: 20190508
  Transmission Date: 20190711
  Serious: Yes (Other)
  Sender: FDA-Public Use
  Company Number: US-ARRAY-2019-05504

PATIENT

DRUGS (5)
  1. BRAFTOVI [Suspect]
     Active Substance: ENCORAFENIB
     Dosage: 300 MG, QD
     Dates: start: 20190429
  2. BRAFTOVI [Suspect]
     Active Substance: ENCORAFENIB
     Indication: METASTATIC MALIGNANT MELANOMA
     Dosage: 450 MG, QD
     Dates: start: 20190211, end: 20190429
  3. SIMVASTATIN. [Concomitant]
     Active Substance: SIMVASTATIN
     Indication: PRODUCT USED FOR UNKNOWN INDICATION
     Dosage: 40 MG, QD
  4. MEKTOVI [Suspect]
     Active Substance: BINIMETINIB
     Indication: METASTATIC MALIGNANT MELANOMA
     Dosage: 45 MG, BID
     Dates: start: 20190211, end: 20190429
  5. MEKTOVI [Suspect]
     Active Substance: BINIMETINIB
     Dosage: 30 MG, BID
     Dates: start: 20190429

REACTIONS (4)
  - Delirium [Recovered/Resolved]
  - Confusional state [Recovered/Resolved]
  - Loss of consciousness [Recovered/Resolved]
  - Memory impairment [Recovered/Resolved]
